FAERS Safety Report 8042385-3 (Version None)
Quarter: 2012Q1

REPORT INFORMATION
  Report Type: 
  Country: None (occurrence: None)
  Receive Date: 20120112
  Receipt Date: 20120110
  Transmission Date: 20120608
  Serious: Yes (Hospitalization)
  Sender: FDA-Public Use
  Company Number: DE-ROCHE-1016139

PATIENT
  Age: 63 Year
  Sex: Female

DRUGS (17)
  1. ATORVASTATIN [Concomitant]
  2. PANTOPRAZOLE [Concomitant]
  3. IBANDRONATE SODIUM [Concomitant]
     Dates: start: 20110701
  4. PYRIDOXIN [Concomitant]
     Dosage: TDD: 1 TABLET (THIAMINE/PYRIDOXINE)
     Dates: start: 20111101
  5. AVASTIN [Suspect]
     Route: 042
     Dates: start: 20111205
  6. LIPOIC ACID [Concomitant]
     Dates: start: 20111118
  7. DOXORUBICIN HCL [Suspect]
     Route: 042
     Dates: start: 20111205
  8. EMEND [Concomitant]
     Dates: start: 20111107
  9. DOXORUBICIN HCL [Suspect]
     Indication: BREAST CANCER METASTATIC
     Dosage: REPORTED AS MYOCET
     Route: 042
     Dates: start: 20111107, end: 20111118
  10. TAMOXIFEN CITRATE [Concomitant]
     Dates: start: 20110519
  11. THIAMINE HCL [Concomitant]
     Dosage: TDD: 1 TABLET (THIAMINE/PYRIDOXINE)
     Dates: start: 20111101
  12. CANDESARTAN CILEXETIL [Concomitant]
     Dates: start: 20111118
  13. ALOXI [Concomitant]
     Dates: start: 20111107
  14. AVASTIN [Suspect]
     Indication: BREAST CANCER METASTATIC
     Dosage: REPORTED AS AVASTIN
     Route: 042
     Dates: start: 20111107, end: 20111118
  15. MESNA [Concomitant]
     Dates: start: 20111107, end: 20111116
  16. CYCLOPHOSPHAMIDE [Suspect]
     Indication: BREAST CANCER METASTATIC
     Route: 042
     Dates: start: 20111107, end: 20111108
  17. METHIMAZOLE [Concomitant]
     Dosage: TOTAL DAILY DOSE: 90 GTTS

REACTIONS (1)
  - FEBRILE NEUTROPENIA [None]
